FAERS Safety Report 4761868-2 (Version None)
Quarter: 2005Q3

REPORT INFORMATION
  Report Type: 
  Country: None (occurrence: None)
  Receive Date: 20050906
  Receipt Date: 20050829
  Transmission Date: 20060218
  Serious: Yes (Hospitalization)
  Sender: FDA-Public Use
  Company Number: FR-BRISTOL-MYERS SQUIBB COMPANY-13094768

PATIENT
  Age: 59 Year
  Sex: Male

DRUGS (1)
  1. ELISOR TABS [Suspect]
     Indication: HYPERCHOLESTEROLAEMIA
     Route: 048
     Dates: start: 20010101, end: 20050801

REACTIONS (4)
  - DUODENITIS [None]
  - GASTRITIS [None]
  - MELAENA [None]
  - MYALGIA [None]
